FAERS Safety Report 23816807 (Version 7)
Quarter: 2025Q2

REPORT INFORMATION
  Report Type: Report from Study
  Country: CO (occurrence: CO)
  Receive Date: 20240504
  Receipt Date: 20250522
  Transmission Date: 20250717
  Serious: Yes (Hospitalization)
  Sender: NOVARTIS
  Company Number: CO-002147023-NVSC2024CO090619

PATIENT
  Age: 77 Year
  Sex: Male
  Weight: 64 kg

DRUGS (6)
  1. COSENTYX [Suspect]
     Active Substance: SECUKINUMAB
     Indication: Psoriatic arthropathy
     Dosage: 300 MG, QMO
     Route: 058
     Dates: start: 20180710
  2. COSENTYX [Suspect]
     Active Substance: SECUKINUMAB
     Indication: Psoriasis
     Dosage: 300 MG, QMO
     Route: 058
     Dates: start: 20200406
  3. COSENTYX [Suspect]
     Active Substance: SECUKINUMAB
     Route: 065
     Dates: end: 202404
  4. COSENTYX [Suspect]
     Active Substance: SECUKINUMAB
     Dosage: 300 MG, QMO
     Route: 065
     Dates: end: 20241012
  5. METHOTREXATE [Concomitant]
     Active Substance: METHOTREXATE
     Indication: Arthritis
     Dosage: UNK UNK, QD (START 2 MONTHS AGO)
     Route: 065
  6. FOLIC ACID [Concomitant]
     Active Substance: FOLIC ACID
     Indication: Arthritis
     Dosage: UNK UNK, QD (STARTED 2 MONTHS AGO)
     Route: 065

REACTIONS (9)
  - Speech disorder [Recovered/Resolved]
  - Cardiac murmur [Unknown]
  - Illness [Unknown]
  - Discomfort [Not Recovered/Not Resolved]
  - Dyspnoea [Unknown]
  - Asthenia [Not Recovered/Not Resolved]
  - Confusional state [Unknown]
  - Boredom [Unknown]
  - Weight decreased [Unknown]

NARRATIVE: CASE EVENT DATE: 20240311
